FAERS Safety Report 6836066-9 (Version None)
Quarter: 2010Q3

REPORT INFORMATION
  Report Type: 
  Country: None (occurrence: None)
  Receive Date: 20100713
  Receipt Date: 20100628
  Transmission Date: 20110219
  Serious: Yes (Hospitalization)
  Sender: FDA-Public Use
  Company Number: FR-ROCHE-212547

PATIENT
  Sex: Female
  Weight: 63 kg

DRUGS (11)
  1. ISOTRETINOIN [Suspect]
     Indication: ACNE
     Route: 048
     Dates: start: 19950101
  2. ISOTRETINOIN [Suspect]
     Route: 048
     Dates: start: 19990201, end: 19990801
  3. ISOTRETINOIN [Suspect]
     Route: 048
     Dates: end: 20000101
  4. EFFEDERM [Suspect]
     Indication: PRODUCT USED FOR UNKNOWN INDICATION
     Route: 061
     Dates: start: 20000101, end: 20100401
  5. AVIBON [Suspect]
     Indication: PRODUCT USED FOR UNKNOWN INDICATION
     Route: 061
     Dates: start: 20000101, end: 20100401
  6. AVLOCARDYL [Concomitant]
     Indication: BASEDOW'S DISEASE
  7. BASDENE [Concomitant]
     Indication: BASEDOW'S DISEASE
  8. XANAX [Concomitant]
     Dosage: 0.5 THIRD DAILY
  9. EFFEXOR [Concomitant]
  10. EFFERALGAN CODEINE [Concomitant]
  11. ZOLPIDEM [Concomitant]
     Dosage: 0.5 THIRD DAILY

REACTIONS (2)
  - ARTHRALGIA [None]
  - TENDONITIS [None]
